FAERS Safety Report 8004965-0 (Version None)
Quarter: 2011Q4

REPORT INFORMATION
  Report Type: 
  Country: None (occurrence: None)
  Receive Date: 20111220
  Receipt Date: 20111208
  Transmission Date: 20120403
  Serious: Yes (Death, Hospitalization)
  Sender: FDA-Public Use
  Company Number: DSA_48152_2011

PATIENT
  Age: 49 Year
  Sex: Male

DRUGS (6)
  1. KETOPROFEN [Suspect]
     Indication: PRODUCT USED FOR UNKNOWN INDICATION
  2. DILTIAZEM [Suspect]
     Indication: PRODUCT USED FOR UNKNOWN INDICATION
     Dosage: DF
  3. ENALAPRIL MALEATE [Suspect]
     Indication: PRODUCT USED FOR UNKNOWN INDICATION
     Dosage: DF
  4. COLCHICUM JTL LIQ [Suspect]
     Indication: PRODUCT USED FOR UNKNOWN INDICATION
     Dosage: 0.5 MG, 80 -90 TAB LETS, ONE TIME ORAL
     Route: 048
  5. DICLOFENAC SODIUM [Suspect]
     Indication: PRODUCT USED FOR UNKNOWN INDICATION
     Dosage: DF
  6. INDAPAMIDE [Suspect]
     Indication: PRODUCT USED FOR UNKNOWN INDICATION
     Dosage: DF

REACTIONS (26)
  - ACUTE RESPIRATORY FAILURE [None]
  - OEDEMA [None]
  - PANCREATIC ATROPHY [None]
  - BRAIN OEDEMA [None]
  - HYPERAEMIA [None]
  - ABDOMINAL TENDERNESS [None]
  - ALANINE AMINOTRANSFERASE INCREASED [None]
  - BLOOD PH DECREASED [None]
  - VOMITING [None]
  - SHOCK [None]
  - DISSEMINATED INTRAVASCULAR COAGULATION [None]
  - PLEURAL HAEMORRHAGE [None]
  - BLOOD UREA INCREASED [None]
  - SUICIDE ATTEMPT [None]
  - DIARRHOEA [None]
  - NAUSEA [None]
  - ATELECTASIS [None]
  - CARDIOMEGALY [None]
  - MULTI-ORGAN FAILURE [None]
  - HEPATIC STEATOSIS [None]
  - HEPATIC FIBROSIS [None]
  - ASPARTATE AMINOTRANSFERASE INCREASED [None]
  - BLOOD CREATINE PHOSPHOKINASE INCREASED [None]
  - CARDIAC ARREST [None]
  - ARTERIOSCLEROSIS CORONARY ARTERY [None]
  - BLOOD CREATININE INCREASED [None]
